FAERS Safety Report 8309459-0 (Version None)
Quarter: 2012Q2

REPORT INFORMATION
  Report Type: 
  Country: None (occurrence: None)
  Receive Date: 20120420
  Receipt Date: 20120410
  Transmission Date: 20120825
  Serious: Yes (Death)
  Sender: FDA-Public Use
  Company Number: TPA2012A02030

PATIENT
  Age: 80 Year
  Sex: Female
  Weight: 77.1115 kg

DRUGS (3)
  1. KLONOPIN [Concomitant]
  2. ACTOS [Suspect]
     Indication: TYPE 2 DIABETES MELLITUS
     Dosage: 45 MG, 1 IN 1 D, PER ORAL
     Route: 048
     Dates: start: 20070101, end: 20111003
  3. GLIPIZIDE [Concomitant]

REACTIONS (2)
  - MYOCARDIAL INFARCTION [None]
  - FLATULENCE [None]
